FAERS Safety Report 6715674-X (Version None)
Quarter: 2010Q2

REPORT INFORMATION
  Report Type: 
  Country: None (occurrence: None)
  Receive Date: 20100507
  Receipt Date: 20090721
  Transmission Date: 20101027
  Serious: No
  Sender: FDA-Public Use
  Company Number: A0797991A

PATIENT
  Age: 60 Year
  Sex: Male

DRUGS (6)
  1. DYNACIRC CR [Suspect]
     Dosage: 5MG TWICE PER DAY
     Route: 048
     Dates: start: 20040101, end: 20090501
  2. COREG CR [Concomitant]
  3. LEXAPRO [Concomitant]
  4. LORAZEPAM [Concomitant]
  5. BENICAR HCT [Concomitant]
  6. CATAPRES-TTS-1 [Concomitant]

REACTIONS (4)
  - DISCOMFORT [None]
  - OEDEMA PERIPHERAL [None]
  - SCAR [None]
  - SKIN DISCOLOURATION [None]
